FAERS Safety Report 10091209 (Version 2)
Quarter: 2014Q2

REPORT INFORMATION
  Report Type: Spontaneous
  Country: US (occurrence: US)
  Receive Date: 20140421
  Receipt Date: 20140421
  Transmission Date: 20141212
  Serious: No
  Sender: FDA-Public Use
  Company Number: US-GILEAD-2012-0059870

PATIENT
  Sex: Female

DRUGS (2)
  1. LETAIRIS [Suspect]
     Indication: PULMONARY HYPERTENSION
     Dosage: 10 MG, UNK
     Route: 048
     Dates: start: 20101124
  2. LETAIRIS [Suspect]
     Indication: INTERSTITIAL LUNG DISEASE

REACTIONS (3)
  - Neck pain [Recovered/Resolved]
  - Spondylitis [Unknown]
  - Headache [Recovered/Resolved]
